FAERS Safety Report 19986498 (Version 1)
Quarter: 2021Q4

REPORT INFORMATION
  Report Type: Spontaneous
  Country: US (occurrence: US)
  Receive Date: 20211022
  Receipt Date: 20211022
  Transmission Date: 20220303
  Serious: Yes (Disabling, Other)
  Sender: FDA-Public Use
  Company Number: US-SA-SAC20211018000484

PATIENT
  Sex: Female

DRUGS (1)
  1. GOLD BOND ORIGINAL STRENGTH POWDER [Suspect]
     Active Substance: MENTHOL\ZINC OXIDE

REACTIONS (6)
  - Ovarian cancer [Unknown]
  - Exposure to chemical pollution [Unknown]
  - Disability [Unknown]
  - Pain [Unknown]
  - Quality of life decreased [Unknown]
  - Anxiety [Unknown]

NARRATIVE: CASE EVENT DATE: 20191227
